FAERS Safety Report 13868344 (Version 2)
Quarter: 2017Q4

REPORT INFORMATION
  Report Type: Spontaneous
  Country: AU (occurrence: AU)
  Receive Date: 20170815
  Receipt Date: 20171020
  Transmission Date: 20180320
  Serious: Yes (Other)
  Sender: FDA-Public Use
  Company Number: AU-ROCHE-1973694

PATIENT
  Sex: Female

DRUGS (6)
  1. HERCEPTIN [Suspect]
     Active Substance: TRASTUZUMAB
     Indication: HER-2 POSITIVE BREAST CANCER
     Route: 065
  2. FLUOROURACIL. [Concomitant]
     Active Substance: FLUOROURACIL
  3. CYCLOPHOSPHAMIDE. [Concomitant]
     Active Substance: CYCLOPHOSPHAMIDE
  4. DOCETAXEL. [Concomitant]
     Active Substance: DOCETAXEL
  5. PERJETA [Suspect]
     Active Substance: PERTUZUMAB
     Indication: HER-2 POSITIVE BREAST CANCER
     Dosage: 420 MG (ONGOING) Q3W X5
     Route: 042
  6. EPIRUBICIN [Concomitant]
     Active Substance: EPIRUBICIN

REACTIONS (4)
  - HER-2 positive breast cancer [Unknown]
  - Drug resistance [Unknown]
  - Off label use [Unknown]
  - Intentional product use issue [Unknown]
